FAERS Safety Report 12390311 (Version 1)
Quarter: 2016Q2

REPORT INFORMATION
  Report Type: Spontaneous
  Country: RS (occurrence: RS)
  Receive Date: 20160520
  Receipt Date: 20160520
  Transmission Date: 20160815
  Serious: Yes (Death, Other)
  Sender: FDA-Public Use
  Company Number: RS-TEVA-660625ISR

PATIENT
  Age: 79 Year
  Sex: Female
  Weight: 80 kg

DRUGS (7)
  1. RIFAMOR [Suspect]
     Active Substance: RIFAMPIN
     Indication: STAPHYLOCOCCAL INFECTION
     Dosage: 600 MILLIGRAM DAILY;
     Route: 048
  2. RANITIDINE. [Concomitant]
     Active Substance: RANITIDINE
     Indication: PROPHYLAXIS
     Dosage: 10 ML DAILY;
     Route: 042
     Dates: start: 20160307
  3. VANCOMYCIN [Suspect]
     Active Substance: VANCOMYCIN
     Indication: ACINETOBACTER INFECTION
     Dosage: 2 GRAM DAILY;
     Route: 042
     Dates: start: 20160311, end: 20160318
  4. ZODOL [Concomitant]
     Indication: ANALGESIC THERAPY
     Dosage: 2 ML DAILY;
     Route: 042
     Dates: start: 20160307
  5. COLISTIN [Suspect]
     Active Substance: COLISTIN
     Indication: ACINETOBACTER INFECTION
     Dosage: DOSE: 1 MIU
     Route: 042
     Dates: start: 20160311, end: 20160318
  6. FRAXIPARIN [Concomitant]
     Active Substance: NADROPARIN CALCIUM
     Indication: PROPHYLAXIS
     Dosage: .6 ML DAILY;
     Route: 058
     Dates: start: 20160307
  7. DIUNORM [Concomitant]
     Indication: DIURETIC THERAPY
     Dosage: 25 MILLIGRAM DAILY;
     Route: 048
     Dates: start: 20160307, end: 20160317

REACTIONS (2)
  - Death [Fatal]
  - Acute kidney injury [Recovering/Resolving]

NARRATIVE: CASE EVENT DATE: 20160315
